FAERS Safety Report 19999978 (Version 4)
Quarter: 2022Q4

REPORT INFORMATION
  Report Type: Report from Study
  Country: US (occurrence: US)
  Receive Date: 20211026
  Receipt Date: 20221027
  Transmission Date: 20230113
  Serious: Yes (Other)
  Sender: FDA-Public Use
  Company Number: US-NOVARTISPH-NVSC2021US236387

PATIENT
  Sex: Female

DRUGS (5)
  1. KESIMPTA [Suspect]
     Active Substance: OFATUMUMAB
     Indication: Multiple sclerosis
     Dosage: 20 MG, QW (INJECT 1 PEN) (WEEK 0, WEEK 1 AND WEEK 2 AS DIRECTED)
     Route: 058
  2. KESIMPTA [Suspect]
     Active Substance: OFATUMUMAB
     Dosage: 20 MG, QW (INJECT 1 PEN) (WEEK 0, WEEK 1 AND WEEK 2 AS DIRECTED)
     Route: 058
  3. CLONAZEPAM [Concomitant]
     Active Substance: CLONAZEPAM
     Indication: Product used for unknown indication
     Dosage: UNK
     Route: 065
  4. TIZANIDINE HYDROCHLORIDE [Concomitant]
     Active Substance: TIZANIDINE HYDROCHLORIDE
     Indication: Product used for unknown indication
     Dosage: UNK
     Route: 065
  5. D3 50 [Concomitant]
     Indication: Product used for unknown indication
     Dosage: UNK
     Route: 065

REACTIONS (5)
  - Hepatitis [Recovering/Resolving]
  - Influenza like illness [Unknown]
  - Somnolence [Unknown]
  - Feeling hot [Unknown]
  - Drug ineffective [Unknown]
